FAERS Safety Report 12759556 (Version 1)
Quarter: 2016Q3

REPORT INFORMATION
  Report Type: Spontaneous
  Country: US (occurrence: US)
  Receive Date: 20160919
  Receipt Date: 20160919
  Transmission Date: 20161109
  Serious: Yes (Death, Life-Threatening, Hospitalization)
  Sender: FDA-Public Use
  Company Number: None

PATIENT
  Age: 70 Year
  Sex: Female
  Weight: 72.1 kg

DRUGS (5)
  1. EFFEXOR [Concomitant]
     Active Substance: VENLAFAXINE HYDROCHLORIDE
  2. WELLBUTRIN [Concomitant]
     Active Substance: BUPROPION HYDROCHLORIDE
  3. REXULTI [Concomitant]
     Active Substance: BREXPIPRAZOLE
  4. METHYLPHENIDATE. [Concomitant]
     Active Substance: METHYLPHENIDATE
  5. METHYLENE BLUE. [Suspect]
     Active Substance: METHYLENE BLUE
     Indication: VASOPLEGIA SYNDROME
     Dosage: 210 MG OTHER INTRAVENOUS DRIP
     Route: 041
     Dates: start: 20160914, end: 20160914

REACTIONS (9)
  - Serotonin syndrome [None]
  - Ischaemic hepatitis [None]
  - Nystagmus [None]
  - Blood creatine phosphokinase increased [None]
  - Muscle twitching [None]
  - Drug interaction [None]
  - Renal failure [None]
  - Body temperature increased [None]
  - Cerebrovascular accident [None]

NARRATIVE: CASE EVENT DATE: 20160914
